FAERS Safety Report 12713166 (Version 3)
Quarter: 2017Q3

REPORT INFORMATION
  Report Type: Report from Study
  Country: US (occurrence: US)
  Receive Date: 20160902
  Receipt Date: 20170927
  Transmission Date: 20171127
  Serious: Yes (Hospitalization)
  Sender: FDA-Public Use
  Company Number: US-ACTELION-A-NJ2016-141587

PATIENT
  Age: 84 Year
  Sex: Female
  Weight: 58.96 kg

DRUGS (2)
  1. REVATIO [Concomitant]
     Active Substance: SILDENAFIL CITRATE
  2. TRACLEER [Suspect]
     Active Substance: BOSENTAN
     Indication: PULMONARY ARTERIAL HYPERTENSION
     Dosage: 62.5 MG, BID
     Route: 048
     Dates: start: 20141212

REACTIONS (5)
  - Urinary tract infection [Unknown]
  - Syncope [Unknown]
  - Seasonal allergy [Unknown]
  - Fall [Unknown]
  - Dehydration [Unknown]
